FAERS Safety Report 6967703-6 (Version None)
Quarter: 2010Q3

REPORT INFORMATION
  Report Type: 
  Country: None (occurrence: None)
  Receive Date: 20100907
  Receipt Date: 20100825
  Transmission Date: 20110219
  Serious: No
  Sender: FDA-Public Use
  Company Number: US-PFIZER INC-2010107647

PATIENT
  Sex: Male

DRUGS (2)
  1. NEURONTIN [Suspect]
     Indication: NEUROPATHY PERIPHERAL
     Dosage: UNK
  2. NEURONTIN [Suspect]
     Indication: FIBROMYALGIA
     Dosage: 800 MG, 4X/DAY

REACTIONS (1)
  - DRUG INEFFECTIVE [None]
